FAERS Safety Report 4648934-7 (Version None)
Quarter: 2005Q2

REPORT INFORMATION
  Report Type: 
  Country: None (occurrence: None)
  Receive Date: 20050427
  Receipt Date: 20050413
  Transmission Date: 20051028
  Serious: Yes (Death)
  Sender: FDA-Public Use
  Company Number: US_0504115144

PATIENT
  Age: 70 Year
  Sex: Female
  Weight: 45 kg

DRUGS (8)
  1. TERIPARATIDE [Suspect]
     Indication: OSTEOPOROSIS
     Dosage: 20 UG/D
     Dates: start: 20040415
  2. LISINOPRIL [Concomitant]
  3. ACIPHEX [Concomitant]
  4. PLAQUENIL [Concomitant]
  5. TEMAZEPAM [Concomitant]
  6. VICODIN [Concomitant]
  7. DHEA [Concomitant]
  8. PREDNISONE [Concomitant]

REACTIONS (3)
  - ANEURYSM [None]
  - MYOCARDIAL INFARCTION [None]
  - SUDDEN DEATH [None]
